FAERS Safety Report 22060254 (Version 1)
Quarter: 2023Q1

REPORT INFORMATION
  Report Type: Spontaneous
  Country: US (occurrence: None)
  Receive Date: 20230303
  Receipt Date: 20230303
  Transmission Date: 20230417
  Serious: Yes (Other)
  Sender: FDA-Public Use
  Company Number: None

PATIENT
  Age: 35 Year
  Sex: Male
  Weight: 89.1 kg

DRUGS (1)
  1. CABENUVA [Suspect]
     Active Substance: CABOTEGRAVIR\RILPIVIRINE
     Indication: HIV infection
     Dosage: 4 ML EVERY 28 DAYS INTRAMUSCULAR?
     Route: 030
     Dates: start: 20220501, end: 20230104

REACTIONS (3)
  - Viraemia [None]
  - Blood HIV RNA increased [None]
  - Drug resistance [None]

NARRATIVE: CASE EVENT DATE: 20230217
